FAERS Safety Report 16184750 (Version 1)
Quarter: 2019Q2

REPORT INFORMATION
  Report Type: Spontaneous
  Country: US (occurrence: US)
  Receive Date: 20190410
  Receipt Date: 20190410
  Transmission Date: 20190711
  Serious: Yes (Disabling, Congenital Anomaly)
  Sender: FDA-Public Use
  Company Number: None

PATIENT
  Age: 39 Year
  Sex: Female
  Weight: 81.65 kg

DRUGS (2)
  1. LYRICA [Suspect]
     Active Substance: PREGABALIN
  2. TRAMADOL. [Suspect]
     Active Substance: TRAMADOL

REACTIONS (11)
  - Hyperaesthesia teeth [None]
  - Maternal drugs affecting foetus [None]
  - Teeth brittle [None]
  - Weight increased [None]
  - Maternal exposure during pregnancy [None]
  - Speech disorder developmental [None]
  - Pain [None]
  - Depression [None]
  - Feeling abnormal [None]
  - Mental disorder [None]
  - Withdrawal syndrome [None]

NARRATIVE: CASE EVENT DATE: 20110901
